FAERS Safety Report 11407221 (Version 1)
Quarter: 2015Q3

REPORT INFORMATION
  Report Type: Report from Study
  Country: US (occurrence: US)
  Receive Date: 20150821
  Receipt Date: 20150821
  Transmission Date: 20151125
  Serious: Yes (Death, Other)
  Sender: FDA-Public Use
  Company Number: US-EXELIXIS-CABO-15005539

PATIENT
  Age: 85 Year
  Sex: Male
  Weight: 87.54 kg

DRUGS (18)
  1. COMETRIQ [Suspect]
     Active Substance: CABOZANTINIB S-MALATE
     Dosage: 80 MG, QD
     Dates: start: 201506, end: 201507
  2. BILBERRY [Concomitant]
     Active Substance: BILBERRY
  3. GLUCOSAMINE [Concomitant]
     Active Substance: GLUCOSAMINE
  4. TRIMETRA [Concomitant]
  5. TRIAMTERENE AND HYDROCHLOROTHIAZIDE [Concomitant]
     Active Substance: HYDROCHLOROTHIAZIDE\TRIAMTERENE
  6. CALCIUM [Concomitant]
     Active Substance: CALCIUM
  7. FINASTERIDE. [Concomitant]
     Active Substance: FINASTERIDE
  8. MULTIVITAMIN [Concomitant]
     Active Substance: VITAMINS
  9. ATENOLOL. [Concomitant]
     Active Substance: ATENOLOL
  10. D3 [Concomitant]
     Active Substance: 25-HYDROXYCHOLECALCIFEROL, 5-TRANS-
  11. OMEPRAZOLE. [Concomitant]
     Active Substance: OMEPRAZOLE
  12. COMETRIQ [Suspect]
     Active Substance: CABOZANTINIB S-MALATE
     Dosage: 60 MG, QD
     Route: 048
     Dates: start: 20150706, end: 20150713
  13. IBUPROFEN. [Concomitant]
     Active Substance: IBUPROFEN
  14. POTASSIUM CHLORIDE. [Concomitant]
     Active Substance: POTASSIUM CHLORIDE
  15. COMETRIQ [Suspect]
     Active Substance: CABOZANTINIB S-MALATE
     Indication: THYROID CANCER
     Dosage: 80 MG QOD
     Route: 048
     Dates: start: 20150610, end: 20150620
  16. MICARDIS [Concomitant]
     Active Substance: TELMISARTAN
  17. BIOFLEX [Concomitant]
     Active Substance: GLUCOSAMINE SULFATE
  18. LUTEIN [Concomitant]
     Active Substance: LUTEIN

REACTIONS (16)
  - Malaise [Unknown]
  - Haemorrhage [Unknown]
  - Dysgeusia [Unknown]
  - Anorectal discomfort [Unknown]
  - Mucosal inflammation [Recovering/Resolving]
  - Weight decreased [Unknown]
  - Constipation [Unknown]
  - Aphonia [Unknown]
  - Decreased appetite [Unknown]
  - Chronic kidney disease [Unknown]
  - Diarrhoea [Unknown]
  - Pain in extremity [Unknown]
  - Asthenia [Unknown]
  - Myocardial infarction [Fatal]
  - Malignant neoplasm progression [Fatal]
  - Dysphonia [Recovering/Resolving]

NARRATIVE: CASE EVENT DATE: 20150725
